FAERS Safety Report 4341483-5 (Version None)
Quarter: 2004Q2

REPORT INFORMATION
  Report Type: 
  Country: None (occurrence: None)
  Receive Date: 20040415
  Receipt Date: 20040406
  Transmission Date: 20050107
  Serious: Yes (Hospitalization)
  Sender: FDA-Public Use
  Company Number: US-JNJFOC-20040401975

PATIENT
  Age: 61 Year
  Sex: Female

DRUGS (1)
  1. REGRANEX [Suspect]
     Indication: DIABETIC ULCER

REACTIONS (2)
  - OSTEOMYELITIS [None]
  - STAPHYLOCOCCAL INFECTION [None]
